FAERS Safety Report 8976190 (Version 1)
Quarter: 2012Q4

REPORT INFORMATION
  Report Type: 
  Country: US (occurrence: US)
  Receive Date: 20121219
  Receipt Date: 20121219
  Transmission Date: 20130627
  Serious: No
  Sender: FDA-Public Use
  Company Number: US-AMGEN-USASP2012066194

PATIENT
  Age: 78 Year
  Sex: Female

DRUGS (1)
  1. PROLIA [Suspect]
     Indication: OSTEOPOROSIS
     Dosage: UNK
     Dates: start: 20121004

REACTIONS (11)
  - Burning sensation [Unknown]
  - Pruritus [Unknown]
  - Dyspnoea [Unknown]
  - Discomfort [Unknown]
  - Fatigue [Unknown]
  - Back pain [Unknown]
  - Oedema peripheral [Unknown]
  - Stomatitis [Unknown]
  - Incontinence [Unknown]
  - Urine odour abnormal [Unknown]
  - Pain in extremity [Unknown]
